FAERS Safety Report 5019507-1 (Version None)
Quarter: 2006Q2

REPORT INFORMATION
  Report Type: 
  Country: None (occurrence: None)
  Receive Date: 20060414
  Receipt Date: 20050714
  Transmission Date: 20061013
  Serious: Yes (Other)
  Sender: FDA-Public Use
  Company Number: US-JNJFOC-20050700520

PATIENT
  Age: 33 Year
  Sex: Female
  Weight: 58.9676 kg

DRUGS (3)
  1. ULTRAM [Suspect]
     Indication: ABDOMINAL PAIN
     Dosage: 50 MG, 3 IN 1 DAY, ORAL
     Route: 048
     Dates: start: 20050526
  2. XANAX [Concomitant]
  3. NEURONTIN [Concomitant]

REACTIONS (1)
  - DRUG ABUSER [None]
